FAERS Safety Report 5264401-4 (Version None)
Quarter: 2007Q1

REPORT INFORMATION
  Report Type: 
  Country: None (occurrence: None)
  Receive Date: 20070309
  Receipt Date: 20070102
  Transmission Date: 20070707
  Serious: No
  Sender: FDA-Public Use
  Company Number: TPA2006A01688

PATIENT
  Age: 62 Year
  Sex: Female
  Weight: 71.2147 kg

DRUGS (19)
  1. ACTOS [Suspect]
     Indication: DIABETES MELLITUS NON-INSULIN-DEPENDENT
     Dosage: SEE IMAGE
     Route: 048
     Dates: end: 20050101
  2. ACTOS [Suspect]
     Indication: DIABETES MELLITUS NON-INSULIN-DEPENDENT
     Dosage: SEE IMAGE
     Route: 048
     Dates: start: 20040101
  3. ACTOS [Suspect]
     Indication: DIABETES MELLITUS NON-INSULIN-DEPENDENT
     Dosage: SEE IMAGE
     Route: 048
     Dates: start: 20060320
  4. ACTOS [Suspect]
     Indication: DIABETES MELLITUS NON-INSULIN-DEPENDENT
     Dosage: SEE IMAGE
     Route: 048
     Dates: start: 20060915
  5. ACTOS [Suspect]
  6. HYZAAR [Concomitant]
  7. NORVASC [Concomitant]
  8. CILOSTAZOL [Concomitant]
  9. NEXIUM [Concomitant]
  10. PRAVACHOL [Concomitant]
  11. TRICOR [Concomitant]
  12. BELLADONNA ALKALOIDS WITH PHENOBARBITAL (BELLADONNA ALKALOIDS) (TABLET [Concomitant]
  13. POTASSIUM (POTASSIUM) [Concomitant]
  14. MULTIVITAMIN [Concomitant]
  15. FISH OIL (FISH OIL) [Concomitant]
  16. ASPIRIN [Concomitant]
  17. SIMILSAN (HOMEOPATICS NOS, HERBAL EXTRACT NOS) (EYE DROPS) [Concomitant]
  18. CHLORHEXIDINE GLUCONATE [Concomitant]
  19. PERIOCHECK (ALL OTHER THERAPEUTIC PRODUCTS) [Concomitant]

REACTIONS (4)
  - BLOOD GLUCOSE INCREASED [None]
  - GLARE [None]
  - RETINAL EXUDATES [None]
  - TOOTH DISORDER [None]
